FAERS Safety Report 9249100 (Version 1)
Quarter: 2013Q2

REPORT INFORMATION
  Report Type: Spontaneous
  Country: ES (occurrence: ES)
  Receive Date: 20130423
  Receipt Date: 20130423
  Transmission Date: 20140414
  Serious: Yes (Life-Threatening, Other)
  Sender: FDA-Public Use
  Company Number: ES-ELI_LILLY_AND_COMPANY-ES201304004579

PATIENT
  Age: 88 Year
  Sex: Female

DRUGS (7)
  1. ZYPREXA [Suspect]
     Indication: AGITATION
     Dosage: 5 MG, QD
     Dates: start: 201303
  2. ZYPREXA [Suspect]
     Dosage: 20 MG, QD
  3. ZYPREXA [Suspect]
     Dosage: 15 MG, QD
  4. ZYPREXA [Suspect]
     Dosage: 10 MG, QD
     Dates: start: 201303
  5. SEROQUEL [Concomitant]
     Indication: AGITATION
     Dosage: UNK
     Dates: end: 201304
  6. HYGROTON [Concomitant]
     Indication: HYPERTENSION
     Dosage: UNK
  7. VALIUM [Concomitant]

REACTIONS (9)
  - Respiratory arrest [Recovered/Resolved]
  - Cerebral infarction [Recovered/Resolved]
  - Insomnia [Unknown]
  - Feeling cold [Recovered/Resolved]
  - Speech disorder [Not Recovered/Not Resolved]
  - Gait disturbance [Not Recovered/Not Resolved]
  - Somnolence [Unknown]
  - Intentional drug misuse [Recovered/Resolved]
  - Off label use [Unknown]
